FAERS Safety Report 5392803-4 (Version None)
Quarter: 2007Q3

REPORT INFORMATION
  Report Type: 
  Country: None (occurrence: None)
  Receive Date: 20070720
  Receipt Date: 20070709
  Transmission Date: 20080115
  Serious: Yes (Hospitalization)
  Sender: FDA-Public Use
  Company Number: US-PFIZER INC-2007051849

PATIENT
  Sex: Male
  Weight: 69.9 kg

DRUGS (16)
  1. SUTENT [Suspect]
     Indication: PROSTATE CANCER
     Dates: start: 20070518, end: 20070614
  2. RESTORIL [Suspect]
  3. PREVACID [Concomitant]
  4. LIPITOR [Concomitant]
  5. LORTAB [Concomitant]
  6. XANAX [Concomitant]
  7. VITAMIN CAP [Concomitant]
     Dosage: FREQ:QD
     Route: 048
  8. ROXICODONE [Concomitant]
  9. ZITHROMAX [Concomitant]
  10. OXYIR [Concomitant]
  11. VANCOMYCIN [Concomitant]
  12. ZOSYN [Concomitant]
  13. ATIVAN [Concomitant]
  14. LOMOTIL [Concomitant]
  15. MORPHINE [Concomitant]
  16. ZOFRAN [Concomitant]

REACTIONS (6)
  - BLOOD CHLORIDE DECREASED [None]
  - BLOOD POTASSIUM DECREASED [None]
  - BLOOD SODIUM DECREASED [None]
  - DISEASE PROGRESSION [None]
  - PLATELET COUNT INCREASED [None]
  - PNEUMONIA [None]
